FAERS Safety Report 14410024 (Version 1)
Quarter: 2018Q1

REPORT INFORMATION
  Report Type: Spontaneous
  Country: US (occurrence: US)
  Receive Date: 20180119
  Receipt Date: 20180119
  Transmission Date: 20180509
  Serious: No
  Sender: FDA-Public Use
  Company Number: US-PFIZER INC-2018020493

PATIENT
  Age: 71 Year
  Sex: Male
  Weight: 86.17 kg

DRUGS (1)
  1. XELJANZ [Suspect]
     Active Substance: TOFACITINIB CITRATE
     Dosage: 5 MG, EVERY OTHER DAY
     Dates: start: 201711

REACTIONS (2)
  - Intentional product use issue [Unknown]
  - Joint swelling [Unknown]
